FAERS Safety Report 22640372 (Version 1)
Quarter: 2023Q2

REPORT INFORMATION
  Report Type: Report from Study
  Country: BD (occurrence: BD)
  Receive Date: 20230626
  Receipt Date: 20230626
  Transmission Date: 20230722
  Serious: Yes (Other)
  Sender: FDA-Public Use
  Company Number: BD-002147023-NVSC2023BD060579

PATIENT
  Age: 45 Year
  Sex: Male
  Weight: 50 kg

DRUGS (3)
  1. ENTRESTO [Suspect]
     Active Substance: SACUBITRIL\VALSARTAN
     Indication: Product used for unknown indication
     Dosage: 1 DOSAGE FORM, BID (1YEAR AND 1 MONTH)
     Route: 065
  2. ENTRESTO [Suspect]
     Active Substance: SACUBITRIL\VALSARTAN
     Dosage: 0.5 DOSAGE FORM, BID (25 MG)
     Route: 048
     Dates: start: 202202, end: 20230331
  3. ENTRESTO [Suspect]
     Active Substance: SACUBITRIL\VALSARTAN
     Dosage: 50 MG, BID (50 MG)
     Route: 048

REACTIONS (13)
  - Ascites [Unknown]
  - Urinary tract obstruction [Unknown]
  - Urinary retention [Unknown]
  - Cardiomyopathy [Unknown]
  - Dyspnoea exertional [Recovering/Resolving]
  - Hepatic function abnormal [Unknown]
  - Hepatic steatosis [Unknown]
  - Insomnia [Unknown]
  - Irregular sleep phase [Recovered/Resolved]
  - Stress [Recovered/Resolved]
  - Brain natriuretic peptide abnormal [Not Recovered/Not Resolved]
  - Cough [Recovering/Resolving]
  - Wrong technique in product usage process [Unknown]

NARRATIVE: CASE EVENT DATE: 20220201
